FAERS Safety Report 13861175 (Version 1)
Quarter: 2017Q3

REPORT INFORMATION
  Report Type: Spontaneous
  Country: US (occurrence: US)
  Receive Date: 20170811
  Receipt Date: 20170811
  Transmission Date: 20171127
  Serious: Yes (Other)
  Sender: FDA-Public Use
  Company Number: US-PFIZER INC-2017346668

PATIENT
  Age: 46 Year
  Sex: Female
  Weight: 93.88 kg

DRUGS (5)
  1. IBRANCE [Suspect]
     Active Substance: PALBOCICLIB
     Indication: NEOPLASM MALIGNANT
     Dosage: 125 MG, CYCLIC (ONCE DAILY FOR 21 DAYS AND 7 DAYS OFF)
     Route: 048
     Dates: start: 201703, end: 20170718
  2. CENTRUM MULTIGUMMIES [Interacting]
     Active Substance: MINERALS\VITAMINS
     Indication: MINERAL SUPPLEMENTATION
  3. IBRANCE [Interacting]
     Active Substance: PALBOCICLIB
     Dosage: 75 MG, CYCLIC (4TH CYCLE/SHE TOOK IT FOR 21DAYS)
  4. IBRANCE [Interacting]
     Active Substance: PALBOCICLIB
     Dosage: 100 MG, UNK
     Dates: start: 20170523
  5. CENTRUM MULTIGUMMIES [Interacting]
     Active Substance: MINERALS\VITAMINS
     Indication: HYPOVITAMINOSIS
     Dosage: 2 DF, 1X/DAY
     Route: 048
     Dates: start: 2017, end: 20170803

REACTIONS (2)
  - Drug interaction [Unknown]
  - Neutropenia [Not Recovered/Not Resolved]

NARRATIVE: CASE EVENT DATE: 2017
